FAERS Safety Report 10140515 (Version 1)
Quarter: 2014Q2

REPORT INFORMATION
  Report Type: Report from Study
  Country: FR (occurrence: FR)
  Receive Date: 20140429
  Receipt Date: 20140429
  Transmission Date: 20141212
  Serious: Yes (Other)
  Sender: FDA-Public Use
  Company Number: FR-SA-2014SA053114

PATIENT
  Age: 70 Year
  Sex: Female

DRUGS (1)
  1. ALEMTUZUMAB [Suspect]
     Indication: CHRONIC LYMPHOCYTIC LEUKAEMIA
     Route: 058
     Dates: start: 20130805

REACTIONS (2)
  - Disease recurrence [Unknown]
  - Lymphadenopathy [Unknown]
